FAERS Safety Report 7968987-8 (Version None)
Quarter: 2011Q4

REPORT INFORMATION
  Report Type: 
  Country: None (occurrence: None)
  Receive Date: 20111209
  Receipt Date: 20111129
  Transmission Date: 20120403
  Serious: Yes (Other)
  Sender: FDA-Public Use
  Company Number: DE-JNJFOC-20111101456

PATIENT
  Age: 62 Year
  Sex: Female

DRUGS (9)
  1. XARELTO [Suspect]
     Indication: HIP ARTHROPLASTY
     Route: 048
     Dates: start: 20111012, end: 20111123
  2. SIMVA [Concomitant]
  3. FERROUS SULFATE TAB [Concomitant]
  4. LEVOTHYROXINE SODIUM [Concomitant]
  5. PENTASA [Concomitant]
  6. METFORMIN HCL [Concomitant]
  7. LERCANIDIPINE [Concomitant]
  8. TORSEMIDE [Concomitant]
  9. AZATHIOPRINE [Concomitant]

REACTIONS (2)
  - PETECHIAE [None]
  - VASCULITIS [None]
